FAERS Safety Report 16622615 (Version 1)
Quarter: 2019Q3

REPORT INFORMATION
  Report Type: Spontaneous
  Country: AU (occurrence: AU)
  Receive Date: 20190724
  Receipt Date: 20190724
  Transmission Date: 20191004
  Serious: Yes (Hospitalization, Other)
  Sender: FDA-Public Use
  Company Number: AU-ROCHE-2352345

PATIENT
  Age: 68 Year
  Sex: Female
  Weight: 64.7 kg

DRUGS (16)
  1. CYCLOPHOSPHAMIDE. [Suspect]
     Active Substance: CYCLOPHOSPHAMIDE
     Indication: B-CELL LYMPHOMA
     Route: 065
  2. VINCRISTINE [Suspect]
     Active Substance: VINCRISTINE
     Indication: B-CELL LYMPHOMA
     Route: 065
  3. OXYCODONE [Concomitant]
     Active Substance: OXYCODONE
  4. DOXORUBICIN [Suspect]
     Active Substance: DOXORUBICIN
     Indication: B-CELL LYMPHOMA
     Route: 065
  5. PANADOL [Concomitant]
     Active Substance: ACETAMINOPHEN
  6. TARGIN [Concomitant]
     Active Substance: NALOXONE HYDROCHLORIDE\OXYCODONE HYDROCHLORIDE
  7. GAZYVA [Suspect]
     Active Substance: OBINUTUZUMAB
     Indication: NON-HODGKIN^S LYMPHOMA
     Dosage: C1D8
     Route: 042
     Dates: start: 20190704, end: 20190704
  8. PREDNISONE. [Suspect]
     Active Substance: PREDNISONE
     Indication: B-CELL LYMPHOMA
     Route: 065
  9. ZANUBRUTINIB [Concomitant]
     Active Substance: ZANUBRUTINIB
  10. XARELTO [Concomitant]
     Active Substance: RIVAROXABAN
  11. SEROQUEL XR [Concomitant]
     Active Substance: QUETIAPINE FUMARATE
  12. ACICLOVIR [Concomitant]
     Active Substance: ACYCLOVIR
  13. EFEXOR [Concomitant]
     Active Substance: VENLAFAXINE HYDROCHLORIDE
  14. FILGRASTIM [Concomitant]
     Active Substance: FILGRASTIM
  15. ESOMEPRAZOLE. [Concomitant]
     Active Substance: ESOMEPRAZOLE MAGNESIUM
  16. NYSTATIN. [Concomitant]
     Active Substance: NYSTATIN

REACTIONS (5)
  - Hypotension [Recovered/Resolved]
  - Urinary tract infection [Unknown]
  - Chills [Recovered/Resolved]
  - Hypothermia [Recovered/Resolved]
  - Cold sweat [Recovered/Resolved]

NARRATIVE: CASE EVENT DATE: 20190704
